FAERS Safety Report 10764489 (Version 2)
Quarter: 2015Q1

REPORT INFORMATION
  Report Type: Spontaneous
  Country: US (occurrence: US)
  Receive Date: 20150205
  Receipt Date: 20150220
  Transmission Date: 20150721
  Serious: Yes (Life-Threatening)
  Sender: FDA-Public Use
  Company Number: US-009507513-1502USA001331

PATIENT
  Sex: Female

DRUGS (1)
  1. SUCCINYLCHLORIDE INJECTION [Suspect]
     Active Substance: SUCCINYLCHOLINE
     Indication: MAINTENANCE OF ANAESTHESIA

REACTIONS (1)
  - Drug hypersensitivity [Unknown]
